FAERS Safety Report 5477162-0 (Version None)
Quarter: 2007Q4

REPORT INFORMATION
  Report Type: 
  Country: None (occurrence: None)
  Receive Date: 20071004
  Receipt Date: 20070924
  Transmission Date: 20080405
  Serious: Yes (Disabling)
  Sender: FDA-Public Use
  Company Number: A0673950A

PATIENT
  Age: 63 Year
  Sex: Female
  Weight: 58 kg

DRUGS (4)
  1. PAZOPANIB [Suspect]
     Dosage: 800MG PER DAY
     Route: 048
     Dates: start: 20070619
  2. LAPATINIB [Suspect]
     Dosage: 1250MG PER DAY
     Route: 048
     Dates: start: 20070619
  3. EFFEXOR [Concomitant]
     Indication: DEPRESSION
     Dosage: 75MG PER DAY
     Route: 048
  4. ZOCOR [Concomitant]
     Dosage: 40MG PER DAY
     Route: 048

REACTIONS (2)
  - ARTERIAL THROMBOSIS [None]
  - INTERMITTENT CLAUDICATION [None]
